FAERS Safety Report 5143142-8 (Version None)
Quarter: 2006Q4

REPORT INFORMATION
  Report Type: 
  Country: None (occurrence: None)
  Receive Date: 20061030
  Receipt Date: 20061012
  Transmission Date: 20070319
  Serious: Yes (Other)
  Sender: FDA-Public Use
  Company Number: 2006127607

PATIENT
  Age: 68 Year
  Sex: Female

DRUGS (6)
  1. HALCION [Suspect]
     Indication: INSOMNIA
     Dosage: ORAL
     Route: 048
  2. ADALAT [Suspect]
     Indication: HYPERTENSION
     Dosage: ORAL
     Route: 048
  3. ANTIHYPERTENSIVES (ANTIHYPERTENSIVES) [Concomitant]
  4. SELBEX (TEPRENONE) [Concomitant]
  5. FAMOTIDINE [Concomitant]
  6. HYOSCINE HBR HYT [Concomitant]

REACTIONS (3)
  - DRUG EFFECT DECREASED [None]
  - GINGIVAL PAIN [None]
  - HYPERTENSION [None]
